FAERS Safety Report 18558209 (Version 1)
Quarter: 2020Q4

REPORT INFORMATION
  Report Type: Spontaneous
  Country: US (occurrence: US)
  Receive Date: 20201005
  Receipt Date: 20201005
  Transmission Date: 20210114
  Serious: Yes (Other)
  Sender: FDA-Public Use
  Company Number: None

PATIENT
  Age: 5 Decade
  Sex: Female

DRUGS (7)
  1. LOPINAVIR [Suspect]
     Active Substance: LOPINAVIR
     Indication: COVID-19
     Route: 048
     Dates: start: 2020
  2. RITONAVIR. [Suspect]
     Active Substance: RITONAVIR
     Indication: COVID-19
     Route: 048
     Dates: start: 2020
  3. INTERFERON ALFA-2B [Suspect]
     Active Substance: INTERFERON ALFA-2B
     Indication: COVID-19
     Route: 055
     Dates: start: 2020
  4. METHYLPREDNISOLONE. [Suspect]
     Active Substance: METHYLPREDNISOLONE
     Indication: COVID-19
     Route: 042
     Dates: start: 2020
  5. CEFTRIAXONE. [Suspect]
     Active Substance: CEFTRIAXONE
     Indication: COVID-19
     Dates: start: 2020
  6. THYMOSIN [Suspect]
     Active Substance: THYMOSIN
     Indication: COVID-19
     Dates: start: 2020
  7. PIPERACILLIN AND TAZOBACTAM [Suspect]
     Active Substance: PIPERACILLIN SODIUM\TAZOBACTAM SODIUM
     Indication: COVID-19
     Route: 042
     Dates: start: 2020

REACTIONS (10)
  - Diarrhoea [None]
  - Product use in unapproved indication [None]
  - Treatment failure [None]
  - Acute respiratory failure [None]
  - Acute respiratory distress syndrome [None]
  - White blood cell count increased [None]
  - General physical health deterioration [None]
  - Multiple organ dysfunction syndrome [None]
  - Pulmonary embolism [None]
  - Shock [None]
